FAERS Safety Report 4594990-4 (Version None)
Quarter: 2005Q1

REPORT INFORMATION
  Report Type: 
  Country: None (occurrence: None)
  Receive Date: 20050224
  Receipt Date: 20020904
  Transmission Date: 20050727
  Serious: Yes (Other)
  Sender: FDA-Public Use
  Company Number: GXKR2002GB00441

PATIENT
  Sex: Female

DRUGS (7)
  1. METRONIDAZOLE [Suspect]
     Indication: STAPHYLOCOCCAL INFECTION
     Dosage: 400 MG, INTRAVENOUS
     Route: 042
     Dates: start: 20020701, end: 20020709
  2. CEFUROXIME [Suspect]
     Indication: SEPSIS
     Dosage: 950 MG, INTRAVENOUS
     Route: 042
     Dates: start: 20020701, end: 20020705
  3. TEICOPLANIN               (TEICOPLAININ) [Suspect]
     Indication: LOWER RESPIRATORY TRACT INFECTION
     Dosage: 200 MG, INTRAVENOUS
     Route: 042
     Dates: start: 20020709, end: 20020718
  4. OMEPRAZOLE [Concomitant]
  5. SALBUTAMOL               (SALBUTAMOL) [Concomitant]
  6. BUMETANIDE [Concomitant]
  7. IPRATROPIUM BROMIDE [Concomitant]

REACTIONS (1)
  - CLOSTRIDIAL INFECTION [None]
